FAERS Safety Report 25984508 (Version 1)
Quarter: 2025Q4

REPORT INFORMATION
  Report Type: Spontaneous
  Country: US (occurrence: US)
  Receive Date: 20251031
  Receipt Date: 20251031
  Transmission Date: 20260117
  Serious: No
  Sender: MERCK SHARP & DOHME LLC
  Company Number: US-009507513-2338379

PATIENT
  Age: 63 Year
  Sex: Male

DRUGS (3)
  1. POSACONAZOLE [Suspect]
     Active Substance: POSACONAZOLE
     Indication: CNS ventriculitis
  2. POSACONAZOLE [Suspect]
     Active Substance: POSACONAZOLE
     Indication: CNS ventriculitis
     Dosage: DAILY
  3. AMPHOTERICIN B [Suspect]
     Active Substance: AMPHOTERICIN B
     Indication: CNS ventriculitis
     Dosage: 6 MG/ KG

REACTIONS (1)
  - Product use in unapproved indication [Unknown]
